FAERS Safety Report 5843743-5 (Version None)
Quarter: 2008Q3

REPORT INFORMATION
  Report Type: 
  Country: None (occurrence: None)
  Receive Date: 20080813
  Receipt Date: 20080606
  Transmission Date: 20090109
  Serious: No
  Sender: FDA-Public Use
  Company Number: US-BRISTOL-MYERS SQUIBB COMPANY-14219422

PATIENT
  Sex: Female

DRUGS (1)
  1. IXEMPRA FOR INJ [Suspect]
     Route: 042

REACTIONS (1)
  - EXTRAVASATION [None]
